FAERS Safety Report 10913263 (Version 3)
Quarter: 2015Q2

REPORT INFORMATION
  Report Type: Not Available
  Country: FR (occurrence: FR)
  Receive Date: 20150313
  Receipt Date: 20150513
  Transmission Date: 20150821
  Serious: Yes (Death, Life-Threatening)
  Sender: FDA-Public Use
  Company Number: FR-BEH-2015049431

PATIENT
  Age: 29 Year
  Sex: Female

DRUGS (12)
  1. CIFLOX [Suspect]
     Active Substance: CIPROFLOXACIN
  2. CHEMOTHERAPEUTICS NOS [Concomitant]
     Active Substance: UNSPECIFIED INGREDIENT
  3. AMIKLIN [Suspect]
     Active Substance: AMIKACIN SULFATE
     Dosage: 1 DOSE
  4. VP 16 [Suspect]
     Active Substance: ETOPOSIDE
     Dosage: 400 MG/M2
     Dates: start: 20150131, end: 20150203
  5. PRIVIGEN [Suspect]
     Active Substance: HUMAN IMMUNOGLOBULIN G
     Indication: PRODUCT USED FOR UNKNOWN INDICATION
     Route: 042
     Dates: start: 20150204, end: 20150204
  6. ALKERAN [Suspect]
     Active Substance: MELPHALAN
     Dosage: 140 MG/M2
     Route: 042
  7. TAZOCILLINE [Suspect]
     Active Substance: PIPERACILLIN SODIUM\TAZOBACTAM SODIUM
  8. ZYVOXID [Suspect]
     Active Substance: LINEZOLID
  9. BENDAMUSTIN [Suspect]
     Active Substance: BENDAMUSTINE
     Dosage: 200 MG/M2
     Route: 042
     Dates: start: 20150130, end: 20150131
  10. CYTARABINE. [Suspect]
     Active Substance: CYTARABINE
     Route: 042
     Dates: start: 20150131, end: 20150203
  11. ARACYTINE [Suspect]
     Active Substance: CYTARABINE
     Dosage: DOSE: 2G/M2
  12. TRIATEC [Concomitant]
     Active Substance: RAMIPRIL

REACTIONS (14)
  - Cardiogenic shock [Fatal]
  - Periportal oedema [Fatal]
  - Cardiac tamponade [Fatal]
  - Pleural effusion [Fatal]
  - Acute kidney injury [Not Recovered/Not Resolved]
  - Ischaemic hepatitis [Fatal]
  - Hypertriglyceridaemia [Fatal]
  - Pericardial effusion [Fatal]
  - Localised oedema [Fatal]
  - Respiratory complication associated with device [Fatal]
  - Septic shock [Fatal]
  - Acute respiratory distress syndrome [Fatal]
  - Ascites [Fatal]
  - Hypotension [Fatal]

NARRATIVE: CASE EVENT DATE: 20150203
